FAERS Safety Report 10239460 (Version 1)
Quarter: 2014Q2

REPORT INFORMATION
  Report Type: Spontaneous
  Country: US (occurrence: None)
  Receive Date: 20140612
  Receipt Date: 20140612
  Transmission Date: 20141212
  Serious: Yes (Hospitalization)
  Sender: FDA-Public Use
  Company Number: 2014NUEUSA00337

PATIENT
  Age: 62 Year
  Sex: Female

DRUGS (2)
  1. NUEDEXTA (DEXTROMETHORPHAN HYDROBROMIDE 20 MG, QUINIDINE SULFATE 10 MG) CAPSULE, 20/10MG [Suspect]
     Indication: PRODUCT USED FOR UNKNOWN INDICATION
     Route: 048
  2. CYMBALTA [Suspect]
     Indication: PRODUCT USED FOR UNKNOWN INDICATION
     Route: 048

REACTIONS (14)
  - Gallbladder disorder [None]
  - Urinary tract infection [None]
  - Pruritus [None]
  - Malaise [None]
  - Food craving [None]
  - Nervousness [None]
  - Disorientation [None]
  - Eye pain [None]
  - Hearing impaired [None]
  - Parosmia [None]
  - Disturbance in attention [None]
  - Speech disorder [None]
  - Headache [None]
  - Muscle spasms [None]
